FAERS Safety Report 8836402 (Version 3)
Quarter: 2014Q1

REPORT INFORMATION
  Report Type: Spontaneous
  Country: US (occurrence: US)
  Receive Date: 20121011
  Receipt Date: 20140324
  Transmission Date: 20141002
  Serious: Yes (Hospitalization, Disabling, Other)
  Sender: FDA-Public Use
  Company Number: US-009507513-1210USA004448

PATIENT
  Sex: Female
  Weight: 81.63 kg

DRUGS (4)
  1. FOSAMAX [Suspect]
     Indication: OSTEOPOROSIS
     Dosage: 70 MG, UNK
     Route: 048
     Dates: start: 20071030
  2. FOSAMAX [Suspect]
     Indication: OSTEOPOROSIS
     Dosage: UNK UNK,
     Route: 048
     Dates: start: 200802, end: 2011
  3. ALENDRONATE SODIUM [Suspect]
     Indication: OSTEOPOROSIS
     Dosage: 70 MG, UNK
     Route: 048
     Dates: start: 20090115, end: 20110425
  4. PREDNISONE [Concomitant]
     Indication: ASTHMA
     Dosage: 5-20 MG, UNK QD

REACTIONS (59)
  - Femur fracture [Not Recovered/Not Resolved]
  - Intramedullary rod insertion [Unknown]
  - Low turnover osteopathy [Not Recovered/Not Resolved]
  - Spinal laminectomy [Unknown]
  - Intestinal perforation [Unknown]
  - Sepsis [Unknown]
  - Colectomy [Unknown]
  - Acute respiratory distress syndrome [Unknown]
  - Aphasia [Unknown]
  - Convulsion [Unknown]
  - Spinal fusion surgery [Unknown]
  - Hypercholesterolaemia [Unknown]
  - Sleep apnoea syndrome [Unknown]
  - Hiatus hernia [Unknown]
  - Urinary incontinence [Unknown]
  - Urinary tract infection [Unknown]
  - Osteoarthritis [Unknown]
  - Insomnia [Unknown]
  - Bronchitis [Recovered/Resolved]
  - Hypoaesthesia [Unknown]
  - Intervertebral disc degeneration [Unknown]
  - Facet joint syndrome [Unknown]
  - Lumbar spinal stenosis [Unknown]
  - Anxiety [Unknown]
  - Dyspnoea [Unknown]
  - Fatigue [Unknown]
  - Rectal discharge [Unknown]
  - Paraesthesia [Not Recovered/Not Resolved]
  - Memory impairment [Unknown]
  - Incisional hernia [Unknown]
  - Gastrointestinal stoma complication [Unknown]
  - Cognitive disorder [Unknown]
  - Fungal infection [Unknown]
  - Osteopenia [Unknown]
  - Disorientation [Unknown]
  - Visual impairment [Unknown]
  - Depressed mood [Unknown]
  - Hypertension [Unknown]
  - Hypoaesthesia [Unknown]
  - Irritable bowel syndrome [Unknown]
  - Diverticulum [Unknown]
  - Large intestine polyp [Unknown]
  - Osteoarthritis [Unknown]
  - Chronic obstructive pulmonary disease [Unknown]
  - Radicular pain [Unknown]
  - Confusional state [Recovered/Resolved]
  - Pyrexia [Recovered/Resolved]
  - Haemorrhagic anaemia [Unknown]
  - Cough [Unknown]
  - Musculoskeletal pain [Unknown]
  - Back pain [Unknown]
  - Pain in extremity [Unknown]
  - Pain in extremity [Unknown]
  - Constipation [Recovered/Resolved]
  - Arthralgia [Unknown]
  - Dizziness [Unknown]
  - Nausea [Unknown]
  - Drug ineffective [Unknown]
  - Diarrhoea [Unknown]
